FAERS Safety Report 5142388-2 (Version None)
Quarter: 2006Q4

REPORT INFORMATION
  Report Type: 
  Country: None (occurrence: None)
  Receive Date: 20061102
  Receipt Date: 20061030
  Transmission Date: 20070319
  Serious: Yes (Death)
  Sender: FDA-Public Use
  Company Number: DE-GLAXOSMITHKLINE-D0051334A

PATIENT
  Age: 66 Year
  Sex: Male
  Weight: 76 kg

DRUGS (4)
  1. VALTREX [Suspect]
     Indication: GRAFT VERSUS HOST DISEASE
     Dosage: 500MG TWICE PER DAY
     Route: 048
     Dates: start: 20060313, end: 20060404
  2. TACROLIMUS [Suspect]
     Indication: GRAFT VERSUS HOST DISEASE
     Dosage: 2MG TWICE PER DAY
     Route: 048
  3. SIROLIMUS [Suspect]
     Indication: GRAFT VERSUS HOST DISEASE
     Dosage: 2MG TWICE PER DAY
     Route: 048
     Dates: start: 20060320, end: 20060327
  4. MULTIPLE MEDICATION [Concomitant]
     Route: 065

REACTIONS (3)
  - CHOLESTASIS [None]
  - HYPERBILIRUBINAEMIA [None]
  - TRANSAMINASES INCREASED [None]
